FAERS Safety Report 7291904-3 (Version None)
Quarter: 2011Q1

REPORT INFORMATION
  Report Type: 
  Country: None (occurrence: None)
  Receive Date: 20110214
  Receipt Date: 20110204
  Transmission Date: 20110831
  Serious: Yes (Hospitalization)
  Sender: FDA-Public Use
  Company Number: UG-GILEAD-2011-0036135

PATIENT
  Age: 42 Year
  Sex: Female

DRUGS (2)
  1. VIREAD [Suspect]
     Indication: PROPHYLAXIS AGAINST HIV INFECTION
     Dates: start: 20081111
  2. TRUVADA [Suspect]
     Indication: PROPHYLAXIS AGAINST HIV INFECTION
     Dates: start: 20081111

REACTIONS (1)
  - APPENDICITIS [None]
